FAERS Safety Report 17540859 (Version 1)
Quarter: 2020Q1

REPORT INFORMATION
  Report Type: Spontaneous
  Country: US (occurrence: US)
  Receive Date: 20200313
  Receipt Date: 20200313
  Transmission Date: 20200409
  Serious: No
  Sender: FDA-Public Use
  Company Number: US-TARO-2020TAR00069

PATIENT

DRUGS (1)
  1. LAMOTRIGINE TABLETS 100 MG [Suspect]
     Active Substance: LAMOTRIGINE
     Indication: BIPOLAR II DISORDER
     Dosage: 100 MG, DAILY
     Route: 065
     Dates: start: 201810

REACTIONS (4)
  - Muscular weakness [Unknown]
  - Dizziness [Unknown]
  - Thirst [Unknown]
  - Heart rate increased [Unknown]
